FAERS Safety Report 8793388 (Version 1)
Quarter: 2012Q4

REPORT INFORMATION
  Report Type: 
  Country: US (occurrence: US)
  Receive Date: 20120917
  Receipt Date: 20120917
  Transmission Date: 20130627
  Serious: Yes (Other)
  Sender: FDA-Public Use
  Company Number: US-PFIZER INC-2012228324

PATIENT
  Age: 68 Year
  Sex: Female
  Weight: 100 kg

DRUGS (8)
  1. LYRICA [Suspect]
     Indication: NEUROPATHY PERIPHERAL
     Dosage: 75 mg, 3x/day
     Route: 048
  2. PREVACID [Concomitant]
     Indication: GASTROOESOPHAGEAL REFLUX DISEASE
     Dosage: 20 mg, daily
  3. LORATADINE [Concomitant]
     Indication: HYPERSENSITIVITY
     Dosage: 10 mg, daily
  4. PRAVACHOL [Concomitant]
     Indication: BLOOD CHOLESTEROL ABNORMAL
     Dosage: 20 mg, daily
  5. AMBIEN [Concomitant]
     Dosage: UNK, daily
  6. DILTIAZEM HYDROCHLORIDE [Concomitant]
     Dosage: 120 mg, daily
     Route: 048
  7. FISH OIL [Concomitant]
     Dosage: 1000 mg, daily
  8. ONE-A-DAY [Concomitant]
     Dosage: UNK, daily

REACTIONS (4)
  - Upper limb fracture [Not Recovered/Not Resolved]
  - Skeletal injury [Recovered/Resolved]
  - Fall [Unknown]
  - Malaise [Unknown]
